FAERS Safety Report 16960722 (Version 1)
Quarter: 2019Q4

REPORT INFORMATION
  Report Type: Spontaneous
  Country: GB (occurrence: GB)
  Receive Date: 20191025
  Receipt Date: 20191025
  Transmission Date: 20200122
  Serious: Yes (Death)
  Sender: FDA-Public Use
  Company Number: GB-BAXTER-2019BAX020951

PATIENT
  Sex: Female

DRUGS (1)
  1. SEVOFLURANE BAXTER, 100% INHALATION VAPOUR, LIQUID [Suspect]
     Active Substance: SEVOFLURANE
     Indication: SUICIDE ATTEMPT
     Route: 055

REACTIONS (1)
  - Completed suicide [Fatal]
